FAERS Safety Report 15207951 (Version 1)
Quarter: 2018Q3

REPORT INFORMATION
  Report Type: Spontaneous
  Country: US (occurrence: US)
  Receive Date: 20180628
  Receipt Date: 20180628
  Transmission Date: 20181010
  Serious: Yes (Other)
  Sender: FDA-Public Use
  Company Number: None

PATIENT
  Age: 27 Year
  Sex: Male
  Weight: 95.25 kg

DRUGS (1)
  1. BUPRENORPHINE NALOXONE HYDROCHOLIRIDE, 8?2 MG [Suspect]
     Active Substance: BUPRENORPHINE\NALOXONE
     Indication: DRUG DEPENDENCE
     Dosage: 8?2 MG
     Dates: start: 20180523, end: 20180628

REACTIONS (4)
  - Drug effect decreased [None]
  - Product solubility abnormal [None]
  - Dry mouth [None]
  - Drug dependence [None]

NARRATIVE: CASE EVENT DATE: 20180523
